FAERS Safety Report 6971147-0 (Version None)
Quarter: 2010Q3

REPORT INFORMATION
  Report Type: 
  Country: None (occurrence: None)
  Receive Date: 20100908
  Receipt Date: 20100830
  Transmission Date: 20110219
  Serious: Yes (Other)
  Sender: FDA-Public Use
  Company Number: JP-MERCK-1004USA03597

PATIENT
  Age: 69 Year
  Sex: Female

DRUGS (5)
  1. JANUVIA [Suspect]
     Indication: DIABETES MELLITUS
     Route: 048
     Dates: start: 20100118, end: 20100409
  2. AVAPRO [Concomitant]
     Indication: HYPERTENSION
     Route: 048
     Dates: end: 20100409
  3. LIPIDIL [Concomitant]
     Indication: HYPERLIPIDAEMIA
     Route: 048
     Dates: end: 20100409
  4. METFORMIN HYDROCHLORIDE [Concomitant]
     Indication: DIABETES MELLITUS
     Route: 048
     Dates: start: 20100115
  5. ACTOS [Concomitant]
     Route: 065
     Dates: end: 20100115

REACTIONS (1)
  - TUBULOINTERSTITIAL NEPHRITIS [None]
